FAERS Safety Report 25532431 (Version 1)
Quarter: 2025Q3

REPORT INFORMATION
  Report Type: Spontaneous
  Country: EU (occurrence: EU)
  Receive Date: 20250709
  Receipt Date: 20250709
  Transmission Date: 20251021
  Serious: Yes (Other)
  Sender: Atnahs Healthcare
  Company Number: None

PATIENT
  Age: 56 Year
  Sex: Female

DRUGS (1)
  1. KETOROLAC [Suspect]
     Active Substance: KETOROLAC TROMETHAMINE
     Indication: Back pain
     Route: 030

REACTIONS (5)
  - Peroneal nerve injury [Unknown]
  - Neurotoxicity [Unknown]
  - Injection site nerve damage [Unknown]
  - Hypoaesthesia [Unknown]
  - Off label use [Unknown]
